FAERS Safety Report 8201606-4 (Version None)
Quarter: 2012Q1

REPORT INFORMATION
  Report Type: 
  Country: None (occurrence: None)
  Receive Date: 20120312
  Receipt Date: 20120302
  Transmission Date: 20120608
  Serious: Yes (Other)
  Sender: FDA-Public Use
  Company Number: MX-ROCHE-1045819

PATIENT
  Sex: Female
  Weight: 80 kg

DRUGS (2)
  1. XELODA [Suspect]
     Route: 048
     Dates: start: 20120220
  2. XELODA [Suspect]
     Indication: BREAST CANCER
     Route: 048
     Dates: start: 20120109, end: 20120213

REACTIONS (3)
  - DYSPNOEA [None]
  - OEDEMA PERIPHERAL [None]
  - PULMONARY OEDEMA [None]
